FAERS Safety Report 5200692-3 (Version None)
Quarter: 2006Q4

REPORT INFORMATION
  Report Type: 
  Country: None (occurrence: None)
  Receive Date: 20061016
  Receipt Date: 20060628
  Transmission Date: 20070319
  Serious: No
  Sender: FDA-Public Use
  Company Number: 2006SP002582

PATIENT
  Age: 65 Year
  Sex: Female
  Weight: 54.4316 kg

DRUGS (1)
  1. LUNESTA [Suspect]
     Indication: INITIAL INSOMNIA
     Dosage: 2 MG;PRN;ORAL
     Route: 048
     Dates: start: 20060501, end: 20060601

REACTIONS (6)
  - DEPRESSION [None]
  - DISORIENTATION [None]
  - DRUG INEFFECTIVE [None]
  - DYSGEUSIA [None]
  - INITIAL INSOMNIA [None]
  - NAUSEA [None]
